FAERS Safety Report 26201657 (Version 1)
Quarter: 2025Q4

REPORT INFORMATION
  Report Type: Spontaneous
  Country: US (occurrence: US)
  Receive Date: 20251226
  Receipt Date: 20251226
  Transmission Date: 20260118
  Serious: No
  Sender: RIGEL PHARMACEUTICALS
  Company Number: US-RIGEL Pharmaceuticals, INC-20251100072

PATIENT
  Sex: Female

DRUGS (1)
  1. REZLIDHIA [Suspect]
     Active Substance: OLUTASIDENIB
     Indication: Acute myeloid leukaemia
     Dosage: 150 MG BID
     Route: 048
     Dates: start: 20250906

REACTIONS (5)
  - Respiratory tract infection [Unknown]
  - Product dose omission issue [Unknown]
  - Hypersomnia [Unknown]
  - Blood disorder [Unknown]
  - Decreased appetite [Unknown]

NARRATIVE: CASE EVENT DATE: 20250101
